FAERS Safety Report 19471276 (Version 1)
Quarter: 2021Q2

REPORT INFORMATION
  Report Type: Spontaneous
  Country: US (occurrence: US)
  Receive Date: 20210628
  Receipt Date: 20210628
  Transmission Date: 20210717
  Serious: Yes (Hospitalization, Other)
  Sender: FDA-Public Use
  Company Number: US-SUNOVION-2021SUN002333

PATIENT
  Age: 70 Year
  Sex: Male

DRUGS (10)
  1. ASPIRIN. [Concomitant]
     Active Substance: ASPIRIN
     Dosage: UNK
  2. LORAZEPAM. [Concomitant]
     Active Substance: LORAZEPAM
     Dosage: UNK
  3. VALPROIC ACID. [Concomitant]
     Active Substance: VALPROIC ACID
     Dosage: UNK
  4. VALPROIC ACID. [Concomitant]
     Active Substance: VALPROIC ACID
     Dosage: UNK, DOSE REDUCED
  5. TRAZODONE [Concomitant]
     Active Substance: TRAZODONE HYDROCHLORIDE
     Dosage: UNK, AS NEEDED
  6. LATUDA [Suspect]
     Active Substance: LURASIDONE HYDROCHLORIDE
     Indication: BIPOLAR I DISORDER
     Dosage: UNK
     Route: 048
  7. FLUOXETINE [Concomitant]
     Active Substance: FLUOXETINE HYDROCHLORIDE
     Dosage: UNK, INCREASED DOSE
  8. FLUOXETINE [Concomitant]
     Active Substance: FLUOXETINE HYDROCHLORIDE
     Dosage: UNK
  9. FLUOXETINE [Concomitant]
     Active Substance: FLUOXETINE HYDROCHLORIDE
     Dosage: UNK, DOSE DECREASED
  10. BENZTROPINE. [Concomitant]
     Active Substance: BENZTROPINE
     Dosage: UNK

REACTIONS (11)
  - Persistent depressive disorder [Unknown]
  - Arthralgia [Unknown]
  - Asthenia [Unknown]
  - Feeling of despair [Unknown]
  - Anhedonia [Unknown]
  - Suicidal ideation [Unknown]
  - Malaise [Unknown]
  - Decreased appetite [Unknown]
  - Gait disturbance [Unknown]
  - Poor quality sleep [Unknown]
  - Feeling guilty [Unknown]
